FAERS Safety Report 23486850 (Version 1)
Quarter: 2024Q1

REPORT INFORMATION
  Report Type: Report from Study
  Country: US (occurrence: US)
  Receive Date: 20240206
  Receipt Date: 20240206
  Transmission Date: 20240410
  Serious: No
  Sender: FDA-Public Use
  Company Number: US-ORG100014127-2023000392

PATIENT
  Age: 43 Year
  Sex: Female

DRUGS (10)
  1. LYSODREN [Suspect]
     Active Substance: MITOTANE
     Indication: Adrenal gland cancer
     Dosage: 500MG: 1 TABLET ORALLY 2 TIMES DAILY
     Route: 048
     Dates: start: 20230321
  2. HYDROCHLOROT CAP 12.5MG [Concomitant]
     Indication: Product used for unknown indication
  3. HYDROCHLOROT TAB 25MG [Concomitant]
     Indication: Product used for unknown indication
  4. HYDROCORT POW [Concomitant]
     Indication: Product used for unknown indication
  5. HYDROCORT TAB 10MG [Concomitant]
     Indication: Product used for unknown indication
  6. LISINOPRIL TAB 2.5MG [Concomitant]
     Indication: Product used for unknown indication
  7. ONDANSETRON [Concomitant]
     Active Substance: ONDANSETRON
     Indication: Product used for unknown indication
  8. OXYCODONE [Concomitant]
     Active Substance: OXYCODONE\OXYCODONE HYDROCHLORIDE
     Indication: Product used for unknown indication
  9. TYLENOL TAB 500MG [Concomitant]
     Indication: Product used for unknown indication
  10. ZESTRIL TAB 20MG [Concomitant]
     Indication: Product used for unknown indication

REACTIONS (3)
  - Toothache [Not Recovered/Not Resolved]
  - Abdominal pain upper [Not Recovered/Not Resolved]
  - Memory impairment [Not Recovered/Not Resolved]

NARRATIVE: CASE EVENT DATE: 20230101
